FAERS Safety Report 17053631 (Version 3)
Quarter: 2019Q4

REPORT INFORMATION
  Report Type: Spontaneous
  Country: JP (occurrence: JP)
  Receive Date: 20191120
  Receipt Date: 20191206
  Transmission Date: 20200122
  Serious: Yes (Hospitalization)
  Sender: FDA-Public Use
  Company Number: JP-JNJFOC-20191112493

PATIENT
  Age: 59 Year
  Sex: Male
  Weight: 80.9 kg

DRUGS (27)
  1. PREDNISOLONE. [Concomitant]
     Active Substance: PREDNISOLONE
     Dates: start: 2018, end: 2018
  2. SIMPONI [Suspect]
     Active Substance: GOLIMUMAB
     Route: 058
     Dates: start: 2018, end: 2018
  3. PREDNISOLONE. [Concomitant]
     Active Substance: PREDNISOLONE
     Dates: start: 2018, end: 2018
  4. METHOTREXATE. [Concomitant]
     Active Substance: METHOTREXATE
     Dates: start: 2017, end: 2017
  5. METHOTREXATE. [Concomitant]
     Active Substance: METHOTREXATE
     Dates: start: 2018, end: 2018
  6. PREDNISOLONE. [Concomitant]
     Active Substance: PREDNISOLONE
     Dates: start: 2017, end: 2017
  7. METHOTREXATE. [Concomitant]
     Active Substance: METHOTREXATE
     Indication: RHEUMATOID ARTHRITIS
     Dates: start: 2017, end: 2017
  8. METHOTREXATE. [Concomitant]
     Active Substance: METHOTREXATE
     Dates: start: 2017, end: 2017
  9. PREDNISOLONE. [Concomitant]
     Active Substance: PREDNISOLONE
     Dates: start: 2017, end: 2017
  10. PREDNISOLONE. [Concomitant]
     Active Substance: PREDNISOLONE
     Dates: start: 2018
  11. METHOTREXATE. [Concomitant]
     Active Substance: METHOTREXATE
     Dates: start: 2017, end: 2017
  12. PREDNISOLONE. [Concomitant]
     Active Substance: PREDNISOLONE
     Indication: RHEUMATOID ARTHRITIS
     Dates: start: 2017, end: 2017
  13. PREDNISOLONE. [Concomitant]
     Active Substance: PREDNISOLONE
     Dates: start: 2017, end: 2017
  14. PREDNISOLONE. [Concomitant]
     Active Substance: PREDNISOLONE
     Dates: start: 2018, end: 2018
  15. BUCILLAMINE [Concomitant]
     Active Substance: BUCILLAMINE
     Indication: RHEUMATOID ARTHRITIS
     Route: 048
  16. METHOTREXATE. [Concomitant]
     Active Substance: METHOTREXATE
     Dates: start: 2018, end: 2018
  17. METHOTREXATE. [Concomitant]
     Active Substance: METHOTREXATE
     Dates: start: 2018
  18. PREDNISOLONE. [Concomitant]
     Active Substance: PREDNISOLONE
     Dates: start: 2017, end: 2017
  19. PREDNISOLONE. [Concomitant]
     Active Substance: PREDNISOLONE
     Dates: start: 2017, end: 2017
  20. SIMPONI [Suspect]
     Active Substance: GOLIMUMAB
     Indication: RHEUMATOID ARTHRITIS
     Route: 058
     Dates: start: 2017, end: 2017
  21. TOFACITINIB CITRATE [Concomitant]
     Active Substance: TOFACITINIB CITRATE
     Indication: RHEUMATOID ARTHRITIS
     Route: 048
     Dates: start: 2018
  22. PREDNISOLONE. [Concomitant]
     Active Substance: PREDNISOLONE
     Dates: start: 2017, end: 2017
  23. PREDNISOLONE. [Concomitant]
     Active Substance: PREDNISOLONE
     Dates: start: 2017, end: 2017
  24. PREDNISOLONE. [Concomitant]
     Active Substance: PREDNISOLONE
     Dates: start: 2018, end: 2018
  25. SIMPONI [Suspect]
     Active Substance: GOLIMUMAB
     Route: 058
     Dates: start: 2018, end: 2018
  26. HYDROXYCHLOROQUINE SULFATE. [Concomitant]
     Active Substance: HYDROXYCHLOROQUINE SULFATE
     Indication: RHEUMATOID ARTHRITIS
     Route: 048
  27. SALAZOPYRIN [Concomitant]
     Active Substance: SULFASALAZINE
     Indication: RHEUMATOID ARTHRITIS
     Route: 065

REACTIONS (2)
  - Pneumothorax [Not Recovered/Not Resolved]
  - Rheumatoid nodule [Unknown]
